FAERS Safety Report 6389045-2 (Version None)
Quarter: 2009Q4

REPORT INFORMATION
  Report Type: 
  Country: None (occurrence: None)
  Receive Date: 20091001
  Receipt Date: 20090925
  Transmission Date: 20100525
  Serious: Yes (Life-Threatening)
  Sender: FDA-Public Use
  Company Number: GB-EBEWE-14220XALI09

PATIENT
  Age: 78 Year
  Sex: Male
  Weight: 65 kg

DRUGS (3)
  1. OXALIPLATIN [Suspect]
     Indication: COLON CANCER METASTATIC
     Dosage: 72.5 MG, IV
     Route: 042
     Dates: start: 20090727, end: 20090727
  2. FLUOROURACIL [Concomitant]
  3. FOLINIC ACID [Concomitant]

REACTIONS (2)
  - INFUSION RELATED REACTION [None]
  - MYOCARDIAL INFARCTION [None]
